FAERS Safety Report 6989971-7 (Version None)
Quarter: 2010Q3

REPORT INFORMATION
  Report Type: 
  Country: None (occurrence: None)
  Receive Date: 20100916
  Receipt Date: 20100329
  Transmission Date: 20110219
  Serious: Yes (Other)
  Sender: FDA-Public Use
  Company Number: US-PFIZER INC-2010040643

PATIENT
  Sex: Male

DRUGS (4)
  1. LYRICA [Suspect]
     Indication: NEURALGIA
     Dosage: 200 MG, 3X/DAY
     Dates: start: 20060101
  2. LYRICA [Interacting]
     Indication: SPINAL DISORDER
  3. OMEPRAZOLE [Interacting]
     Indication: GASTROOESOPHAGEAL REFLUX DISEASE
     Dosage: 20 MG, DAILY
     Dates: start: 20100201
  4. NITROSTAT [Concomitant]
     Indication: CARDIAC DISORDER
     Dosage: 0.4 MG, AS NEEDED

REACTIONS (7)
  - EYE SWELLING [None]
  - LIP SWELLING [None]
  - OEDEMA MOUTH [None]
  - OEDEMA PERIPHERAL [None]
  - PRURITUS [None]
  - SWELLING FACE [None]
  - URTICARIA [None]
